FAERS Safety Report 19313533 (Version 1)
Quarter: 2021Q2

REPORT INFORMATION
  Report Type: Report from Study
  Country: US (occurrence: US)
  Receive Date: 20210527
  Receipt Date: 20210527
  Transmission Date: 20210717
  Serious: Yes (Other)
  Sender: FDA-Public Use
  Company Number: US-JNJFOC-20210534828

PATIENT
  Age: 49 Year
  Sex: Female

DRUGS (2)
  1. SPRAVATO [Suspect]
     Active Substance: ESKETAMINE
     Indication: DEPRESSION
     Dosage: 4 TOTAL DOSES
     Dates: start: 20191023, end: 20191030
  2. SPRAVATO [Suspect]
     Active Substance: ESKETAMINE
     Dosage: 73 TOTAL DOSES
     Dates: start: 20191105, end: 20210309

REACTIONS (1)
  - Psychotic disorder [Unknown]

NARRATIVE: CASE EVENT DATE: 20210518
